FAERS Safety Report 6243722-2 (Version None)
Quarter: 2009Q2

REPORT INFORMATION
  Report Type: 
  Country: None (occurrence: None)
  Receive Date: 20090624
  Receipt Date: 20090612
  Transmission Date: 20091009
  Serious: Yes (Other)
  Sender: FDA-Public Use
  Company Number: US-SANOFI-SYNTHELABO-A03200902643

PATIENT
  Sex: Female

DRUGS (3)
  1. STALEVO 100 [Concomitant]
     Indication: PARKINSON'S DISEASE
     Dosage: UNK
     Route: 065
  2. AMBIEN [Suspect]
     Indication: SLEEP DISORDER
     Dosage: UNK
     Route: 048
  3. AMBIEN [Suspect]
     Dosage: UNK
     Route: 048

REACTIONS (3)
  - FALL [None]
  - LACERATION [None]
  - WRONG TECHNIQUE IN DRUG USAGE PROCESS [None]
